FAERS Safety Report 10477270 (Version 2)
Quarter: 2015Q4

REPORT INFORMATION
  Report Type: Spontaneous
  Country: US (occurrence: US)
  Receive Date: 20140926
  Receipt Date: 20151208
  Transmission Date: 20160304
  Serious: Yes (Death, Hospitalization, Other)
  Sender: FDA-Public Use
  Company Number: US-JNJFOC-20140918691

PATIENT
  Age: 51 Year
  Sex: Male
  Weight: 96.3 kg

DRUGS (12)
  1. MOTRIN [Suspect]
     Active Substance: IBUPROFEN
     Indication: PYREXIA
     Dosage: 200 MG, TWICE, ONCE IN THE EVENING, ALSO MENTIONED AS 400 MG TAKEN EVERY 6 HOURS.
     Route: 048
  2. BIOTIN [Concomitant]
     Active Substance: BIOTIN
     Indication: PRODUCT USED FOR UNKNOWN INDICATION
     Route: 048
  3. MULTIVITAMINS [Concomitant]
     Active Substance: VITAMINS
     Indication: PRODUCT USED FOR UNKNOWN INDICATION
     Route: 048
  4. TYLENOL 8 HR [Suspect]
     Active Substance: ACETAMINOPHEN
     Route: 065
  5. TYLENOL 8 HR [Suspect]
     Active Substance: ACETAMINOPHEN
     Indication: PRODUCT USED FOR UNKNOWN INDICATION
     Route: 065
     Dates: start: 201009
  6. MOTRIN [Suspect]
     Active Substance: IBUPROFEN
     Indication: PYREXIA
     Dosage: 200 MG, FOURTIMES, IN THE MORNING.
     Route: 048
  7. ALAVERT ALLERGY [Concomitant]
     Active Substance: LORATADINE
     Indication: PRODUCT USED FOR UNKNOWN INDICATION
     Route: 048
  8. CLARITIN-D 12 HOUR [Concomitant]
     Active Substance: LORATADINE\PSEUDOEPHEDRINE SULFATE
     Indication: PRODUCT USED FOR UNKNOWN INDICATION
     Route: 048
  9. ACETAMINOPHEN EXTRA STRENGTH [Suspect]
     Active Substance: ACETAMINOPHEN
     Indication: PRODUCT USED FOR UNKNOWN INDICATION
     Dosage: RECEIVED 14 TABLETS (7 GRAMS) IN 36HOURS
     Route: 048
     Dates: start: 201009
  10. TYLENOL [Suspect]
     Active Substance: ACETAMINOPHEN
     Indication: PAIN
     Route: 065
     Dates: start: 201009
  11. DICLOFENAC [Suspect]
     Active Substance: DICLOFENAC
     Indication: PAIN
     Route: 065
     Dates: start: 201009
  12. TYLENOL [Suspect]
     Active Substance: ACETAMINOPHEN
     Indication: PYREXIA
     Route: 065
     Dates: start: 201009

REACTIONS (33)
  - Hepatitis [None]
  - Pulmonary oedema [None]
  - Drug ineffective [Unknown]
  - Sepsis [None]
  - Haemorrhagic anaemia [None]
  - Acute kidney injury [None]
  - Transplant [None]
  - Cardiac arrest [None]
  - Multi-organ failure [None]
  - Atelectasis [None]
  - Hepatic failure [None]
  - Cholecystitis acute [None]
  - Ventricular tachycardia [None]
  - Metabolic acidosis [None]
  - Pain [None]
  - Infection [None]
  - Epstein-Barr virus test positive [None]
  - Pseudomonas test positive [None]
  - Candida test positive [None]
  - Cytomegalovirus viraemia [None]
  - Gastrointestinal disorder [None]
  - Skin graft [None]
  - Cytomegalovirus colitis [None]
  - Respiratory failure [None]
  - Acinetobacter test positive [None]
  - Drug hypersensitivity [None]
  - Renal replacement therapy [None]
  - Toxic epidermal necrolysis [Fatal]
  - Pneumonia [None]
  - Serratia test positive [None]
  - Rectal abscess [None]
  - Vitamin D deficiency [None]
  - Pleural effusion [None]

NARRATIVE: CASE EVENT DATE: 201009
